FAERS Safety Report 14970582 (Version 1)
Quarter: 2018Q2

REPORT INFORMATION
  Report Type: Spontaneous
  Country: US (occurrence: US)
  Receive Date: 20180604
  Receipt Date: 20180604
  Transmission Date: 20180711
  Serious: Yes (Other)
  Sender: FDA-Public Use
  Company Number: US-TEVA-2018-US-900184

PATIENT
  Sex: Female

DRUGS (2)
  1. RISPERIDONE. [Suspect]
     Active Substance: RISPERIDONE
     Route: 065
  2. LITHIUM. [Concomitant]
     Active Substance: LITHIUM
     Route: 065

REACTIONS (4)
  - Asthenia [Unknown]
  - Mobility decreased [Unknown]
  - Haematemesis [Unknown]
  - Fall [Unknown]
